FAERS Safety Report 9605080 (Version 2)
Quarter: 2013Q4

REPORT INFORMATION
  Report Type: Spontaneous
  Country: US (occurrence: US)
  Receive Date: 20131008
  Receipt Date: 20131008
  Transmission Date: 20140711
  Serious: Yes (Congenital Anomaly, Other)
  Sender: FDA-Public Use
  Company Number: US-PFIZER INC-2013272186

PATIENT
  Sex: Male
  Weight: 1.88 kg

DRUGS (2)
  1. DIFLUCAN [Suspect]
     Indication: COCCIDIOIDOMYCOSIS
     Dosage: 800 MG, DAILY
     Route: 064
     Dates: start: 199004
  2. AMPHOTERICIN B [Concomitant]
     Route: 064

REACTIONS (18)
  - Maternal exposure during pregnancy [Unknown]
  - Fallot^s tetralogy [Unknown]
  - Cyanosis [Unknown]
  - Hypotonia [Unknown]
  - Arthropathy [Unknown]
  - Bone disorder [Unknown]
  - Brachycephaly [Unknown]
  - Micrognathia [Unknown]
  - Ear disorder [Unknown]
  - Strabismus [Unknown]
  - Skull malformation [Unknown]
  - Head deformity [Unknown]
  - Congenital musculoskeletal anomaly [Unknown]
  - Micrognathia [Unknown]
  - Osteopenia [Unknown]
  - Atrial septal defect [Unknown]
  - Patent ductus arteriosus [Unknown]
  - Congenital hydrocephalus [Unknown]
